FAERS Safety Report 8575559-3 (Version None)
Quarter: 2012Q3

REPORT INFORMATION
  Report Type: 
  Country: None (occurrence: None)
  Receive Date: 20120807
  Receipt Date: 20120730
  Transmission Date: 20120928
  Serious: Yes (Other)
  Sender: FDA-Public Use
  Company Number: US-US-EMD SERONO, INC.-7135072

PATIENT
  Sex: Female

DRUGS (5)
  1. REBIF [Suspect]
     Route: 058
     Dates: start: 20120605
  2. REBIF [Suspect]
     Route: 058
  3. PROVIGIL [Concomitant]
     Indication: PRODUCT USED FOR UNKNOWN INDICATION
  4. KLONOPIN [Concomitant]
     Indication: PRODUCT USED FOR UNKNOWN INDICATION
  5. REBIF [Suspect]
     Indication: MULTIPLE SCLEROSIS
     Route: 058
     Dates: start: 20021001, end: 20110901

REACTIONS (6)
  - INJECTION SITE NODULE [None]
  - FATIGUE [None]
  - MATERNAL EXPOSURE TIMING UNSPECIFIED [None]
  - CYST [None]
  - ABORTION INDUCED [None]
  - INFLUENZA LIKE ILLNESS [None]
